FAERS Safety Report 22821890 (Version 3)
Quarter: 2024Q2

REPORT INFORMATION
  Report Type: Spontaneous
  Country: BE (occurrence: BE)
  Receive Date: 20230814
  Receipt Date: 20240628
  Transmission Date: 20240716
  Serious: Yes (Hospitalization, Other)
  Sender: FDA-Public Use
  Company Number: BE-CELLTRION HEALTHCARE HUNGARY KFT-2023BE014547

PATIENT
  Age: 73 Year
  Sex: Male

DRUGS (11)
  1. MYCOPHENOLATE MOFETIL [Suspect]
     Active Substance: MYCOPHENOLATE MOFETIL
     Indication: Colitis ulcerative
     Dosage: 500 MG TWICE DAILY PO (STARTED AT DAY 20)
     Route: 048
     Dates: start: 2021
  2. MYCOPHENOLATE MOFETIL [Suspect]
     Active Substance: MYCOPHENOLATE MOFETIL
     Indication: Immune-mediated enterocolitis
     Dosage: 1000 MG, BID, HIGH DOSE
     Route: 048
     Dates: start: 2021
  3. BECLOMETHASONE DIPROPIONATE [Suspect]
     Active Substance: BECLOMETHASONE DIPROPIONATE
     Indication: Colitis ulcerative
     Dosage: 5 MILLIGRAM, BID, DEGRESSIVE DOSE
     Route: 061
     Dates: start: 2021
  4. BECLOMETHASONE DIPROPIONATE [Suspect]
     Active Substance: BECLOMETHASONE DIPROPIONATE
     Indication: Immune-mediated enterocolitis
  5. INFLIXIMAB [Suspect]
     Active Substance: INFLIXIMAB
     Indication: Colitis ulcerative
     Dosage: 5 MILLIGRAM/KILOGRAM (DAY 10)
     Route: 042
     Dates: start: 2021
  6. INFLIXIMAB [Suspect]
     Active Substance: INFLIXIMAB
     Indication: Immune-mediated enterocolitis
     Dosage: 5 MILLIGRAM/KILOGRAM
     Route: 065
  7. METHYLPREDNISOLONE [Suspect]
     Active Substance: METHYLPREDNISOLONE
     Indication: Colitis ulcerative
     Dosage: 1.5 MILLIGRAM/KILOGRAM, DOSE INCREASED
     Route: 042
     Dates: start: 2021
  8. METHYLPREDNISOLONE [Suspect]
     Active Substance: METHYLPREDNISOLONE
     Indication: Immune-mediated enterocolitis
     Dosage: 64 MILLIGRAM
     Route: 042
     Dates: start: 2021
  9. METHYLPREDNISOLONE [Suspect]
     Active Substance: METHYLPREDNISOLONE
     Dosage: 1 MILLIGRAM/KILOGRAM
     Route: 042
     Dates: start: 2021
  10. METHYLPREDNISOLONE [Suspect]
     Active Substance: METHYLPREDNISOLONE
     Dosage: UNK, DEGRESSIVE DOSE
     Route: 065
     Dates: start: 2021
  11. NIVOLUMAB [Suspect]
     Active Substance: NIVOLUMAB
     Indication: Malignant melanoma
     Dosage: UNK
     Route: 065
     Dates: start: 202012

REACTIONS (13)
  - Sepsis [Recovered/Resolved]
  - Enterococcal infection [Recovering/Resolving]
  - Staphylococcal bacteraemia [Recovering/Resolving]
  - Cytomegalovirus infection reactivation [Recovering/Resolving]
  - Diarrhoea [Recovered/Resolved]
  - Bacterial sepsis [Recovering/Resolving]
  - Enterococcal bacteraemia [Recovering/Resolving]
  - Mononucleosis syndrome [Recovering/Resolving]
  - Immunosuppression [Unknown]
  - Immune-mediated enterocolitis [Recovered/Resolved]
  - Intentional product use issue [Unknown]
  - Off label use [Unknown]
  - Drug ineffective for unapproved indication [Unknown]

NARRATIVE: CASE EVENT DATE: 20210101
